FAERS Safety Report 11878031 (Version 1)
Quarter: 2015Q4

REPORT INFORMATION
  Report Type: Spontaneous
  Country: US (occurrence: None)
  Receive Date: 20151229
  Receipt Date: 20151229
  Transmission Date: 20160305
  Serious: No
  Sender: FDA-Public Use
  Company Number: None

PATIENT
  Sex: Female

DRUGS (1)
  1. VASERETIC [Suspect]
     Active Substance: ENALAPRIL MALEATE\HYDROCHLOROTHIAZIDE

REACTIONS (5)
  - Mydriasis [None]
  - Peripheral swelling [None]
  - Anuria [None]
  - Eyelid oedema [None]
  - Swelling face [None]

NARRATIVE: CASE EVENT DATE: 20151124
